FAERS Safety Report 7318345-4 (Version None)
Quarter: 2011Q1

REPORT INFORMATION
  Report Type: 
  Country: None (occurrence: None)
  Receive Date: 20110218
  Receipt Date: 20110218
  Transmission Date: 20110831
  Serious: Yes (Hospitalization)
  Sender: FDA-Public Use
  Company Number: None

PATIENT
  Age: 83 Year
  Sex: Female
  Weight: 89.5 kg

DRUGS (11)
  1. LEVOXYL [Concomitant]
  2. ADDERALL 10 [Concomitant]
  3. VIT D [Concomitant]
  4. PROPRANOLOL [Concomitant]
  5. CLINDAMYCIN [Concomitant]
  6. COUMADIN [Suspect]
     Indication: CORONARY ARTERY DISEASE
     Dosage: 6 MG / 5MG M /TWTHFSS PO / PO CHRONIC
     Route: 048
  7. M.V.I. [Concomitant]
  8. TYLENOL [Concomitant]
  9. ASPIRIN [Suspect]
     Indication: CORONARY ARTERY DISEASE
     Dosage: 81MG DAILY PO CHRONIC
     Route: 048
  10. LISINOPRIL [Concomitant]
  11. DARVON [Concomitant]

REACTIONS (3)
  - SURGICAL PROCEDURE REPEATED [None]
  - SUBCUTANEOUS HAEMATOMA [None]
  - INCISION SITE PAIN [None]
